FAERS Safety Report 5500401-4 (Version None)
Quarter: 2007Q4

REPORT INFORMATION
  Report Type: 
  Country: None (occurrence: None)
  Receive Date: 20071029
  Receipt Date: 20071017
  Transmission Date: 20080405
  Serious: Yes (Hospitalization, Other)
  Sender: FDA-Public Use
  Company Number: US-WYE-H00714107

PATIENT
  Sex: Female
  Weight: 58.57 kg

DRUGS (3)
  1. PREMARIN [Suspect]
     Indication: HYSTERECTOMY
     Route: 048
     Dates: start: 19780101, end: 20070905
  2. REMICADE [Concomitant]
     Indication: RHEUMATOID ARTHRITIS
     Dosage: UNKNOWN
     Route: 065
     Dates: start: 20060101
  3. SYNTHROID [Concomitant]
     Dosage: UNKNOWN
     Route: 065

REACTIONS (1)
  - BREAST CANCER METASTATIC [None]
